FAERS Safety Report 6426924-1 (Version None)
Quarter: 2009Q4

REPORT INFORMATION
  Report Type: 
  Country: None (occurrence: None)
  Receive Date: 20091103
  Receipt Date: 20091103
  Transmission Date: 20100525
  Serious: No
  Sender: FDA-Public Use
  Company Number: None

PATIENT
  Age: 61 Year
  Sex: Male
  Weight: 80.5 kg

DRUGS (2)
  1. CISPLATIN [Suspect]
     Dosage: 145 MG ONCE IV
     Route: 042
     Dates: start: 20090116, end: 20090116
  2. FLUOROURACIL [Suspect]
     Dosage: 7720 MG QWEEK IV
     Route: 042
     Dates: start: 20090116, end: 20090120

REACTIONS (4)
  - ASTHENIA [None]
  - HYPOTENSION [None]
  - HYPOVOLAEMIA [None]
  - RENAL FAILURE ACUTE [None]
